FAERS Safety Report 5255734-6 (Version None)
Quarter: 2007Q1

REPORT INFORMATION
  Report Type: 
  Country: None (occurrence: None)
  Receive Date: 20070301
  Receipt Date: 20070214
  Transmission Date: 20070707
  Serious: Yes (Other)
  Sender: FDA-Public Use
  Company Number: B0459658A

PATIENT
  Age: 14 Year
  Sex: Female
  Weight: 26.4447 kg

DRUGS (3)
  1. RETROVIR [Suspect]
     Indication: HIV INFECTION
     Dates: end: 20010101
  2. EPIVIR [Suspect]
     Indication: HIV INFECTION
     Dates: end: 20010101
  3. RITONAVIR (FORMULATION UNKNOWN) (RITONAVIR) [Suspect]
     Indication: HIV INFECTION
     Dates: end: 20010101

REACTIONS (35)
  - AIDS DEMENTIA COMPLEX [None]
  - AORTIC ARTERIOSCLEROSIS [None]
  - ARTERIOSCLEROSIS [None]
  - ARTERIOSCLEROSIS CORONARY ARTERY [None]
  - BRAIN ABSCESS [None]
  - CACHEXIA [None]
  - CALCINOSIS [None]
  - CEREBRAL ATROPHY [None]
  - CEREBRAL INFARCTION [None]
  - CORONARY ARTERY DISEASE [None]
  - CORONARY ARTERY OCCLUSION [None]
  - CRYPTOCOCCOSIS [None]
  - CSF TEST ABNORMAL [None]
  - DIARRHOEA [None]
  - DISEASE PROGRESSION [None]
  - ENCEPHALITIS [None]
  - ENCEPHALOPATHY [None]
  - ENTEROBACTER INFECTION [None]
  - FAT ATROPHY [None]
  - FAT TISSUE INCREASED [None]
  - FIBROSIS [None]
  - FUNGAL INFECTION [None]
  - GLIOSIS [None]
  - HALLUCINATION [None]
  - HYDROCEPHALUS [None]
  - HYPERCHOLESTEROLAEMIA [None]
  - LUNG DISORDER [None]
  - MUSCLE ATROPHY [None]
  - NECROSIS [None]
  - NERVOUS SYSTEM DISORDER [None]
  - NOCARDIOSIS [None]
  - PNEUMONIA [None]
  - PULMONARY INFARCTION [None]
  - SEPSIS [None]
  - VASCULAR CALCIFICATION [None]
